FAERS Safety Report 13722849 (Version 1)
Quarter: 2017Q3

REPORT INFORMATION
  Report Type: Spontaneous
  Country: US (occurrence: US)
  Receive Date: 20170706
  Receipt Date: 20170706
  Transmission Date: 20171127
  Serious: No
  Sender: FDA-Public Use
  Company Number: US-JNJFOC-20161121833

PATIENT
  Age: 42 Year
  Sex: Female
  Weight: 65.77 kg

DRUGS (14)
  1. PHARMAGABA [Concomitant]
     Route: 065
  2. HUMIRA [Concomitant]
     Active Substance: ADALIMUMAB
     Indication: RHEUMATOID ARTHRITIS
     Route: 058
     Dates: start: 20160229
  3. FOLGAMMA [Concomitant]
     Active Substance: CYANOCOBALAMIN\FOLIC ACID
     Route: 065
  4. PREDNISONE. [Concomitant]
     Active Substance: PREDNISONE
     Indication: RHEUMATOID ARTHRITIS
     Route: 065
     Dates: start: 201511
  5. ZITHROMAX [Concomitant]
     Active Substance: AZITHROMYCIN DIHYDRATE
     Indication: BRONCHITIS
     Route: 065
     Dates: start: 201602
  6. MACROBID [Concomitant]
     Active Substance: NITROFURANTOIN\NITROFURANTOIN MONOHYDRATE
     Indication: URINARY TRACT INFECTION
     Route: 065
     Dates: start: 201602
  7. PANTOTHENIC ACID [Concomitant]
     Active Substance: PANTOTHENIC ACID
     Route: 065
  8. HUMIRA [Concomitant]
     Active Substance: ADALIMUMAB
     Indication: RHEUMATOID ARTHRITIS
     Route: 058
     Dates: start: 201302, end: 20160201
  9. ZITHROMAX [Concomitant]
     Active Substance: AZITHROMYCIN DIHYDRATE
     Indication: VIRAL INFECTION
     Route: 065
     Dates: start: 201602
  10. CALCIUM W/MAGNESIUM/VITAMIN D NOS/ZINC [Concomitant]
     Route: 065
  11. LEVAQUIN [Suspect]
     Active Substance: LEVOFLOXACIN
     Indication: PNEUMONIA
     Route: 065
     Dates: start: 201602
  12. ZINC CITRATE [Concomitant]
     Active Substance: ZINC CITRATE
     Route: 065
  13. CRANBERRY. [Concomitant]
     Active Substance: CRANBERRY
     Route: 065
  14. BIOSPORAL [Concomitant]
     Route: 065

REACTIONS (2)
  - Palpitations [Recovered/Resolved]
  - Insomnia [Recovered/Resolved]

NARRATIVE: CASE EVENT DATE: 201602
